FAERS Safety Report 4264168-2 (Version None)
Quarter: 2004Q1

REPORT INFORMATION
  Report Type: 
  Country: None (occurrence: None)
  Receive Date: 20040105
  Receipt Date: 20030821
  Transmission Date: 20041129
  Serious: Yes (Hospitalization)
  Sender: FDA-Public Use
  Company Number: UKO02000125

PATIENT
  Sex: Male

DRUGS (1)
  1. REGULAN, VERSION/TEXTURE/FLAVOR UNKNOWN (PSYLLIUM HYDROPHILIC MUCILLOI [Suspect]
     Indication: CONSTIPATION
     Dosage: 1 PACKET TWICE DAILY, ORAL
     Route: 048

REACTIONS (5)
  - ABDOMINAL PAIN [None]
  - AORTIC ANEURYSM [None]
  - HYPERSENSITIVITY [None]
  - ILEUS PARALYTIC [None]
  - WEIGHT DECREASED [None]
